FAERS Safety Report 8075269-5 (Version None)
Quarter: 2011Q4

REPORT INFORMATION
  Report Type: 
  Country: None (occurrence: None)
  Receive Date: 20111227
  Receipt Date: 20111114
  Transmission Date: 20120403
  Serious: No
  Sender: FDA-Public Use
  Company Number: PHEH2011US008921

PATIENT
  Age: 37 Year
  Sex: Female
  Weight: 78.1 kg

DRUGS (2)
  1. BUPROPION HCL [Concomitant]
  2. GILENYA [Suspect]
     Indication: MULTIPLE SCLEROSIS
     Dosage: 0.5 MG, DAILY, ORAL
     Route: 048
     Dates: start: 20111027

REACTIONS (1)
  - URINARY RETENTION [None]
